APPROVED DRUG PRODUCT: AZILSARTAN MEDOXOMIL
Active Ingredient: AZILSARTAN KAMEDOXOMIL
Strength: EQ 40MG MEDOXOMIL
Dosage Form/Route: TABLET;ORAL
Application: A214489 | Product #001
Applicant: LUPIN LTD
Approved: Jul 20, 2022 | RLD: No | RS: No | Type: DISCN